FAERS Safety Report 12946741 (Version 1)
Quarter: 2016Q4

REPORT INFORMATION
  Report Type: Spontaneous
  Country: TW (occurrence: TW)
  Receive Date: 20161116
  Receipt Date: 20161116
  Transmission Date: 20170207
  Serious: Yes (Other)
  Sender: FDA-Public Use
  Company Number: TW-BRISTOL-MYERS SQUIBB COMPANY-BMS-2016-094971

PATIENT
  Age: 72 Year
  Sex: Male

DRUGS (1)
  1. OPDIVO [Suspect]
     Active Substance: NIVOLUMAB
     Indication: SQUAMOUS CELL CARCINOMA OF LUNG
     Dosage: UNK UNK, Q2WK
     Route: 065
     Dates: start: 201604

REACTIONS (4)
  - Therapeutic response decreased [Unknown]
  - Malignant neoplasm progression [Unknown]
  - Lipase abnormal [Unknown]
  - Psoriasis [Recovering/Resolving]
